FAERS Safety Report 12015134 (Version 1)
Quarter: 2016Q1

REPORT INFORMATION
  Report Type: Spontaneous
  Country: US (occurrence: US)
  Receive Date: 20160205
  Receipt Date: 20160205
  Transmission Date: 20160526
  Serious: No
  Sender: FDA-Public Use
  Company Number: US-AMGEN-USASP2015017271

PATIENT

DRUGS (5)
  1. TAXOL [Suspect]
     Active Substance: PACLITAXEL
     Indication: INVASIVE DUCTAL BREAST CARCINOMA
     Dosage: UNK UNK, EVERY OTHER WEEK FOR 8 WEEKS
     Route: 065
     Dates: start: 20140520
  2. TAMOXIFEN [Suspect]
     Active Substance: TAMOXIFEN
     Indication: HORMONE THERAPY
     Dosage: UNK
     Route: 065
  3. NEULASTA [Suspect]
     Active Substance: PEGFILGRASTIM
     Indication: PRODUCT USED FOR UNKNOWN INDICATION
     Dosage: UNK
     Route: 065
  4. CYTOXAN [Suspect]
     Active Substance: CYCLOPHOSPHAMIDE
     Indication: INVASIVE DUCTAL BREAST CARCINOMA
     Dosage: UNK UNK, EVERY OTHER WEEK FOR 8 WEEKS
     Route: 065
     Dates: start: 20140520
  5. ADRIAMYCIN [Suspect]
     Active Substance: DOXORUBICIN HYDROCHLORIDE
     Indication: INVASIVE DUCTAL BREAST CARCINOMA
     Dosage: UNK UNK, EVERY OTHER WEEK FOR 8 WEEKS
     Route: 065
     Dates: start: 20140520

REACTIONS (3)
  - Alopecia [Unknown]
  - Insomnia [Unknown]
  - Pain [Unknown]
